APPROVED DRUG PRODUCT: PROCHLORPERAZINE
Active Ingredient: PROCHLORPERAZINE
Strength: 25MG
Dosage Form/Route: SUPPOSITORY;RECTAL
Application: A040407 | Product #003
Applicant: ABLE LABORATORIES INC
Approved: Jul 11, 2001 | RLD: No | RS: No | Type: DISCN